FAERS Safety Report 15125870 (Version 1)
Quarter: 2018Q3

REPORT INFORMATION
  Report Type: Spontaneous
  Country: AU (occurrence: AU)
  Receive Date: 20180710
  Receipt Date: 20180710
  Transmission Date: 20181010
  Serious: Yes (Disabling)
  Sender: FDA-Public Use
  Company Number: AU-009507513-1807AUS001370

PATIENT
  Age: 23 Year
  Sex: Male
  Weight: 60 kg

DRUGS (1)
  1. BELSOMRA [Suspect]
     Active Substance: SUVOREXANT
     Dosage: 25 MG, QD (FREQUENCY REPORTED AS 1: 1)
     Dates: start: 20170801, end: 20170802

REACTIONS (4)
  - Derealisation [Not Recovered/Not Resolved]
  - Somnolence [Not Recovered/Not Resolved]
  - Fear [Not Recovered/Not Resolved]
  - Nightmare [Not Recovered/Not Resolved]

NARRATIVE: CASE EVENT DATE: 20170801
